FAERS Safety Report 16255074 (Version 1)
Quarter: 2019Q2

REPORT INFORMATION
  Report Type: Spontaneous
  Country: US (occurrence: US)
  Receive Date: 20190429
  Receipt Date: 20190429
  Transmission Date: 20190711
  Serious: Yes (Other)
  Sender: FDA-Public Use
  Company Number: None

PATIENT
  Age: 71 Year
  Sex: Female
  Weight: 140.4 kg

DRUGS (1)
  1. TRULICITY [Suspect]
     Active Substance: DULAGLUTIDE
     Indication: BLOOD INSULIN ABNORMAL
     Dosage: ?          QUANTITY:1 INJECTION(S);OTHER FREQUENCY:WEEKLY;?
     Route: 030
     Dates: start: 20190301, end: 20190416

REACTIONS (9)
  - Disorientation [None]
  - Diarrhoea [None]
  - Confusional state [None]
  - Depressed level of consciousness [None]
  - Fatigue [None]
  - Bedridden [None]
  - Asthenia [None]
  - Hypersomnia [None]
  - Feeling abnormal [None]

NARRATIVE: CASE EVENT DATE: 20190405
